FAERS Safety Report 5186677-4 (Version None)
Quarter: 2006Q4

REPORT INFORMATION
  Report Type: 
  Country: None (occurrence: None)
  Receive Date: 20061220
  Receipt Date: 20061207
  Transmission Date: 20070319
  Serious: Yes (Hospitalization, Disabling)
  Sender: FDA-Public Use
  Company Number: SG-MERCK-0612SGP00002

PATIENT
  Age: 84 Year
  Sex: Female

DRUGS (6)
  1. FOSAMAX [Suspect]
     Route: 048
     Dates: start: 20040112
  2. CARVEDILOL [Concomitant]
     Route: 048
  3. NIFEDIPINE [Concomitant]
     Route: 048
  4. ACETAMINOPHEN [Concomitant]
     Route: 065
  5. PIROXICAM [Concomitant]
     Route: 061
  6. CALCIUM (UNSPECIFIED) AND VITAMIN D (UNSPECIFIED) [Concomitant]
     Route: 048

REACTIONS (3)
  - BONE DENSITY DECREASED [None]
  - FALL [None]
  - FEMUR FRACTURE [None]
